FAERS Safety Report 5191290-9 (Version None)
Quarter: 2006Q4

REPORT INFORMATION
  Report Type: 
  Country: None (occurrence: None)
  Receive Date: 20061220
  Receipt Date: 20061220
  Transmission Date: 20070319
  Serious: Yes (Life-Threatening)
  Sender: FDA-Public Use
  Company Number: None

PATIENT
  Age: 72 Year
  Sex: Male
  Weight: 73 kg

DRUGS (8)
  1. EXJADE [Suspect]
     Indication: CHELATION THERAPY
     Dosage: 1500MG   DAILY  PO
     Route: 048
  2. ZOCOR [Concomitant]
  3. METOPROLOL SUCCINATE [Concomitant]
  4. IMDUR [Concomitant]
  5. BACTRIM [Concomitant]
  6. FLUCONAZOLE [Concomitant]
  7. PLATELETS [Concomitant]
  8. RED BLOOD CELLS [Concomitant]

REACTIONS (1)
  - ACUTE MYOCARDIAL INFARCTION [None]
